FAERS Safety Report 5654372-0 (Version None)
Quarter: 2008Q1

REPORT INFORMATION
  Report Type: 
  Country: None (occurrence: None)
  Receive Date: 20080305
  Receipt Date: 20080220
  Transmission Date: 20080703
  Serious: Yes (Hospitalization)
  Sender: FDA-Public Use
  Company Number: 2008BI004310

PATIENT
  Sex: Female

DRUGS (1)
  1. AVONEX [Suspect]
     Indication: DRUG USE FOR UNKNOWN INDICATION
     Dosage: ;IM
     Route: 030
     Dates: end: 20080101

REACTIONS (7)
  - BALANCE DISORDER [None]
  - COLONIC POLYP [None]
  - DIVERTICULITIS [None]
  - GASTRIC POLYPS [None]
  - MYALGIA [None]
  - OPTIC NEURITIS [None]
  - PAIN [None]
